FAERS Safety Report 5822450-9 (Version None)
Quarter: 2008Q3

REPORT INFORMATION
  Report Type: 
  Country: None (occurrence: None)
  Receive Date: 20080725
  Receipt Date: 20080225
  Transmission Date: 20090109
  Serious: No
  Sender: FDA-Public Use
  Company Number: US-AMGEN-KDL266738

PATIENT
  Sex: Male

DRUGS (10)
  1. EPOGEN [Suspect]
     Indication: RENAL FAILURE CHRONIC
     Route: 058
     Dates: start: 20070101
  2. PHOSLO [Concomitant]
  3. LISINOPRIL [Concomitant]
  4. NEURONTIN [Concomitant]
  5. INSULIN [Concomitant]
  6. NPH ILETIN II [Concomitant]
  7. LORTAB [Concomitant]
  8. NORVASC [Concomitant]
  9. ROCALTROL [Concomitant]
  10. UNSPECIFIED NUTRITIONAL SUPPLEMENT [Concomitant]

REACTIONS (1)
  - DIABETIC NEUROPATHY [None]
